FAERS Safety Report 4570218-6 (Version None)
Quarter: 2005Q1

REPORT INFORMATION
  Report Type: 
  Country: None (occurrence: None)
  Receive Date: 20050202
  Receipt Date: 20050120
  Transmission Date: 20050727
  Serious: Yes (Life-Threatening)
  Sender: FDA-Public Use
  Company Number: 2005016793

PATIENT
  Age: 19 Year
  Sex: Female

DRUGS (8)
  1. DOXORUBICIN HCL [Suspect]
     Indication: NON-HODGKIN'S LYMPHOMA
     Dosage: 80 MG (CYCLIC DAY 2),
     Dates: start: 20041201, end: 20041201
  2. ETOPOSIDE [Suspect]
     Indication: NON-HODGKIN'S LYMPHOMA
     Dosage: 250 MG (CYCLIC),
  3. METHOTREXATE [Suspect]
     Indication: NON-HODGKIN'S LYMPHOMA
     Dosage: 40 MG (CYCLIC, DAY, DAY 3), INTRAVENOUS
     Route: 042
     Dates: start: 20041202, end: 20041202
  4. IFOSFAMIDE [Suspect]
     Indication: NON-HODGKIN'S LYMPHOMA
     Dosage: 2500 MG (CYCLIC), INTRAVENOUS
     Route: 042
     Dates: start: 20041130, end: 20041202
  5. MESNA [Suspect]
     Indication: NON-HODGKIN'S LYMPHOMA
     Dosage: (CYCLIC)
     Dates: start: 20041130, end: 20041202
  6. ALLOPURINOL [Suspect]
     Indication: NON-HODGKIN'S LYMPHOMA
     Dosage: 200 MG (DAY), ORAL
     Route: 048
     Dates: start: 20041130
  7. AMPHOTERICIN B [Concomitant]
  8. MITOGUAZONE (MITOGUAZONE) [Concomitant]

REACTIONS (2)
  - COMA [None]
  - ENCEPHALOPATHY [None]
